FAERS Safety Report 5237031-8 (Version None)
Quarter: 2007Q1

REPORT INFORMATION
  Report Type: 
  Country: None (occurrence: None)
  Receive Date: 20070209
  Receipt Date: 20070125
  Transmission Date: 20070707
  Serious: Yes (Death)
  Sender: FDA-Public Use
  Company Number: 2007000166

PATIENT
  Age: 54 Year
  Sex: Male

DRUGS (2)
  1. ERLOTINIB/CODE BROKEN (ERLOTINIB HC1) [Suspect]
     Indication: NON-SMALL CELL LUNG CANCER
     Dosage: 150 MG (QD), ORAL
     Route: 048
     Dates: start: 20061101, end: 20061228
  2. ERLOTINIB/CODE BROKEN (ERLOTINIB HC1) [Suspect]

REACTIONS (1)
  - SUDDEN DEATH [None]
